FAERS Safety Report 13097261 (Version 1)
Quarter: 2017Q1

REPORT INFORMATION
  Report Type: Spontaneous
  Country: US (occurrence: US)
  Receive Date: 20170109
  Receipt Date: 20170109
  Transmission Date: 20170428
  Serious: Yes (Other)
  Sender: FDA-Public Use
  Company Number: None

PATIENT
  Age: 81 Year
  Sex: Female

DRUGS (1)
  1. AVASTIN [Suspect]
     Active Substance: BEVACIZUMAB
     Indication: RETINAL DISORDER
     Route: 031

REACTIONS (4)
  - Foreign body in eye [None]
  - Vitreous floaters [None]
  - Device deposit issue [None]
  - Visual impairment [None]

NARRATIVE: CASE EVENT DATE: 20101004
